FAERS Safety Report 13769819 (Version 2)
Quarter: 2017Q3

REPORT INFORMATION
  Report Type: Spontaneous
  Country: US (occurrence: US)
  Receive Date: 20170719
  Receipt Date: 20170818
  Transmission Date: 20171127
  Serious: Yes (Hospitalization)
  Sender: FDA-Public Use
  Company Number: US-ACTELION-A-NJ2017-156804

PATIENT
  Age: 65 Year
  Sex: Male

DRUGS (2)
  1. TYVASO [Concomitant]
     Active Substance: TREPROSTINIL
     Dosage: 54 MCG, QID
     Dates: start: 20160915
  2. TRACLEER [Suspect]
     Active Substance: BOSENTAN
     Indication: PULMONARY ARTERIAL HYPERTENSION
     Dosage: 125 MG, BID
     Route: 048
     Dates: start: 20121107

REACTIONS (4)
  - Oedema peripheral [Unknown]
  - Rib fracture [Unknown]
  - Chest pain [Unknown]
  - Accident [Unknown]

NARRATIVE: CASE EVENT DATE: 20170704
